FAERS Safety Report 6945416-4 (Version None)
Quarter: 2010Q3

REPORT INFORMATION
  Report Type: 
  Country: None (occurrence: None)
  Receive Date: 20100827
  Receipt Date: 20100818
  Transmission Date: 20110219
  Serious: Yes (Hospitalization)
  Sender: FDA-Public Use
  Company Number: PHHY2010ZA54653

PATIENT
  Sex: Female

DRUGS (14)
  1. STALEVO 100 [Suspect]
     Indication: PARKINSONISM
     Dosage: UNK
  2. AZILECT [Concomitant]
     Indication: PARKINSONISM
     Dosage: UNK
  3. DURAGESIC-100 [Concomitant]
     Indication: OSTEOARTHRITIS
     Dosage: UNK
  4. CIPRALEX [Concomitant]
     Indication: DEPRESSION
     Dosage: 10 MG, DAILY
  5. TRAMADOL HCL [Concomitant]
     Indication: OSTEOARTHRITIS
     Dosage: UNK
  6. RIVOTRIL [Concomitant]
     Indication: SELF INJURIOUS BEHAVIOUR
     Dosage: 0.25 MG, QD
  7. FLUID/ELECTROLYTE REPLACEMENT THERAPY [Concomitant]
     Dosage: UNK
     Route: 042
  8. MAGNESIUM [Concomitant]
     Dosage: UNK
  9. SINEMET [Concomitant]
     Indication: PARKINSON'S DISEASE
     Dosage: 1 DF, QID
  10. SINEMET CR [Concomitant]
     Indication: PARKINSON'S DISEASE
     Dosage: 1 DF, QD
  11. CALCIFEROL [Concomitant]
     Indication: OSTEOPOROSIS
     Dosage: 50000 IU MON/WED/FRI
  12. PANADO [Concomitant]
     Dosage: UNK
  13. OCUVITE LUTEIN [Concomitant]
     Indication: MACULAR DEGENERATION
     Dosage: 1 DF, QD
  14. ZOLEDRONIC [Concomitant]
     Indication: OSTEOPOROSIS
     Dosage: UNK
     Route: 042

REACTIONS (11)
  - DELUSION [None]
  - DYSKINESIA [None]
  - HALLUCINATION, VISUAL [None]
  - HYPERHIDROSIS [None]
  - HYPERKALAEMIA [None]
  - HYPERTENSION [None]
  - PSYCHOTIC DISORDER [None]
  - PYREXIA [None]
  - RENAL FAILURE [None]
  - RHABDOMYOLYSIS [None]
  - TACHYCARDIA [None]
